FAERS Safety Report 11481831 (Version 2)
Quarter: 2015Q3

REPORT INFORMATION
  Report Type: Spontaneous
  Country: US (occurrence: US)
  Receive Date: 20150903
  Receipt Date: 20150903
  Transmission Date: 20151125
  Serious: Yes (Hospitalization, Other)
  Sender: FDA-Public Use
  Company Number: US-ELI_LILLY_AND_COMPANY-US201203007541

PATIENT
  Age: 17 Year
  Sex: Female

DRUGS (3)
  1. CYMBALTA [Suspect]
     Active Substance: DULOXETINE HYDROCHLORIDE
     Indication: DEPRESSION
     Dosage: 60 MG, UNK
  2. ADDERALL [Concomitant]
     Active Substance: AMPHETAMINE ASPARTATE\AMPHETAMINE SULFATE\DEXTROAMPHETAMINE SACCHARATE\DEXTROAMPHETAMINE SULFATE
     Dosage: UNK
     Dates: start: 20120319
  3. INTUNIV [Concomitant]
     Active Substance: GUANFACINE HYDROCHLORIDE
     Dosage: UNK
     Dates: start: 20120319

REACTIONS (3)
  - Hypotension [Not Recovered/Not Resolved]
  - Product use issue [Not Recovered/Not Resolved]
  - Intentional overdose [Unknown]

NARRATIVE: CASE EVENT DATE: 20120319
